FAERS Safety Report 9018337 (Version 2)
Quarter: 2013Q2

REPORT INFORMATION
  Report Type: Spontaneous
  Country: US (occurrence: US)
  Receive Date: 20130117
  Receipt Date: 20130529
  Transmission Date: 20140414
  Serious: Yes (Other)
  Sender: FDA-Public Use
  Company Number: US-PFIZER INC-2013020653

PATIENT
  Age: 43 Year
  Sex: Female
  Weight: 131.52 kg

DRUGS (17)
  1. LYRICA [Suspect]
     Indication: DIABETIC NEUROPATHY
     Dosage: 100 MG, 3X/DAY
     Route: 048
  2. METFORMIN [Concomitant]
     Dosage: 1000 MG, TAKE 1 TABLET EVERY DAY WITH MORNING AND EVENING MEALS
     Route: 048
  3. PRAVASTATIN [Concomitant]
     Dosage: 40 MG, 1X/DAY (1 TABLET)
     Route: 048
  4. OXYCODONE [Concomitant]
     Dosage: UNK
  5. OXYCONTIN [Concomitant]
     Dosage: UNK
  6. ASPIRIN [Concomitant]
     Dosage: UNK
  7. OMEPRAZOLE [Concomitant]
     Indication: ABDOMINAL DISCOMFORT
     Dosage: 20 MG, 1X/DAY (TAKE ONE TABLET DAILY BEFORE THE SAME MEAL EACH DAY)
  8. LANTUS [Concomitant]
     Dosage: (150 UNITS)
     Route: 058
  9. NOVOLOG [Concomitant]
     Dosage: (40 UNITS), 3X/DAY
     Route: 058
  10. REQUIP [Concomitant]
     Indication: RESTLESS LEGS SYNDROME
     Dosage: 0.5 MG, AS NEEDED (ONE AT HS)
  11. LISINOPRIL [Concomitant]
     Dosage: UNK
  12. LISINOPRIL W/HYDROCHLOROTHIAZIDE [Concomitant]
     Dosage: 10 MG-12.5 MG, 1X/DAY
     Route: 048
  13. MAXALT-MLT [Concomitant]
     Dosage: 10 MG, (TAKE 1 TABLET, AND PLACE ON TOP OF THE TONGUE WHERE IT WILL DISSOLVE, THEN SWALLOW ONCE)
     Route: 048
  14. IBUPROFEN [Concomitant]
     Dosage: 800 MG, 1Q 8 HRS/PRN
  15. UREA [Concomitant]
     Dosage: 40 %, 2X/DAY
     Route: 061
  16. ROXICODONE [Concomitant]
     Dosage: 15 MG, ONE Q 8 HRS
  17. FLEXERIL [Concomitant]
     Indication: MUSCLE SPASMS
     Dosage: 10 MG, (0.5-1, EVERY- 8 HOURS AS NEED)
     Route: 048

REACTIONS (4)
  - Renal failure [Unknown]
  - Surgery [Unknown]
  - Malaise [Not Recovered/Not Resolved]
  - Memory impairment [Not Recovered/Not Resolved]
